FAERS Safety Report 25689085 (Version 2)
Quarter: 2025Q3

REPORT INFORMATION
  Report Type: Spontaneous
  Country: GB (occurrence: GB)
  Receive Date: 20250818
  Receipt Date: 20250819
  Transmission Date: 20251021
  Serious: Yes (Death)
  Sender: KARYOPHARM THERAPEUTICS
  Company Number: GB-KARYOPHARM-2025KPT100631

PATIENT

DRUGS (3)
  1. SELINEXOR [Suspect]
     Active Substance: SELINEXOR
     Indication: Plasma cell myeloma refractory
     Route: 048
     Dates: start: 20250407
  2. VELCADE [Suspect]
     Active Substance: BORTEZOMIB
     Indication: Plasma cell myeloma refractory
     Route: 065
  3. DEXAMETHASONE [Suspect]
     Active Substance: DEXAMETHASONE
     Indication: Plasma cell myeloma refractory
     Route: 065

REACTIONS (3)
  - COVID-19 [Fatal]
  - Influenza [Fatal]
  - Pneumonia [Fatal]

NARRATIVE: CASE EVENT DATE: 20250401
